FAERS Safety Report 7464189-2 (Version None)
Quarter: 2011Q2

REPORT INFORMATION
  Report Type: 
  Country: None (occurrence: None)
  Receive Date: 20110506
  Receipt Date: 20110427
  Transmission Date: 20111010
  Serious: Yes (Hospitalization)
  Sender: FDA-Public Use
  Company Number: IT-ASTRAZENECA-2011SE24098

PATIENT
  Age: 26132 Day
  Sex: Male

DRUGS (2)
  1. OMEPRAZOLE [Suspect]
     Dosage: 1 DOSAGE UNIT
     Route: 042
     Dates: start: 20110127, end: 20110127
  2. DEXAMETHASONE SODIUM PHOSPHATE [Suspect]
     Dosage: 4 MG / ML SOLUTION FOR INJECTION 3 VIAL 1 ML
     Route: 042
     Dates: start: 20110127, end: 20110127

REACTIONS (2)
  - CHEST PAIN [None]
  - DYSPNOEA [None]
